FAERS Safety Report 18654265 (Version 2)
Quarter: 2021Q1

REPORT INFORMATION
  Report Type: Spontaneous
  Country: JP (occurrence: JP)
  Receive Date: 20201223
  Receipt Date: 20210201
  Transmission Date: 20210419
  Serious: Yes (Hospitalization)
  Sender: FDA-Public Use
  Company Number: NVSJ2020JP014015

PATIENT
  Age: 59 Year
  Sex: Male

DRUGS (3)
  1. NEORAL [Suspect]
     Active Substance: CYCLOSPORINE
     Indication: PEMPHIGUS
     Dosage: 150 MG, QD
     Route: 048
     Dates: start: 20200925, end: 202010
  2. NEORAL [Suspect]
     Active Substance: CYCLOSPORINE
     Dosage: 150 MG
     Route: 048
     Dates: start: 20201113
  3. FEBURIC [Concomitant]
     Active Substance: FEBUXOSTAT
     Indication: HYPERURICAEMIA
     Dosage: UNK
     Route: 065

REACTIONS (4)
  - Product use in unapproved indication [Unknown]
  - Disease progression [Recovered/Resolved]
  - Pemphigus [Recovered/Resolved]
  - Oral disorder [Recovered/Resolved]

NARRATIVE: CASE EVENT DATE: 202009
